FAERS Safety Report 4595938-9 (Version None)
Quarter: 2005Q1

REPORT INFORMATION
  Report Type: 
  Country: None (occurrence: None)
  Receive Date: 20050224
  Receipt Date: 20050204
  Transmission Date: 20050727
  Serious: Yes (Hospitalization)
  Sender: FDA-Public Use
  Company Number: DE_050215209

PATIENT
  Age: 64 Year
  Sex: Male

DRUGS (5)
  1. ZYPREXA [Suspect]
     Indication: SCHIZOPHRENIA
     Dosage: 20 MG DAY
     Dates: start: 20030620
  2. FLUANXOL (FLUPENTIXOL DECANOATE) [Concomitant]
  3. EUNERPAN (MELPERONE HYDROCHLORIDE) [Concomitant]
  4. CLOZAPINE [Concomitant]
  5. BIPERIDEN HYDROCHLORIDE TAB [Concomitant]

REACTIONS (6)
  - CONSTIPATION [None]
  - DRUG INEFFECTIVE [None]
  - FAECALOMA [None]
  - SUBILEUS [None]
  - VOMITING [None]
  - WHITE BLOOD CELL COUNT INCREASED [None]
